FAERS Safety Report 16272483 (Version 1)
Quarter: 2019Q2

REPORT INFORMATION
  Report Type: Spontaneous
  Country: US (occurrence: US)
  Receive Date: 20190503
  Receipt Date: 20190503
  Transmission Date: 20190711
  Serious: Yes (Other)
  Sender: FDA-Public Use
  Company Number: US-ASCEND THERAPEUTICS-2066605

PATIENT
  Age: 50 Year
  Sex: Female

DRUGS (2)
  1. ESTROGEL [Suspect]
     Active Substance: ESTRADIOL
     Indication: MENOPAUSE
     Route: 062
     Dates: start: 20190418, end: 20190421
  2. ESTRADIOL. [Suspect]
     Active Substance: ESTRADIOL
     Route: 062
     Dates: start: 20190418, end: 20190421

REACTIONS (7)
  - Depression [Recovered/Resolved]
  - Headache [Recovered/Resolved]
  - Flatulence [Recovered/Resolved]
  - Pain in extremity [Recovered/Resolved]
  - Arthralgia [Recovered/Resolved]
  - Suicidal ideation [Recovered/Resolved]
  - Abdominal pain upper [Recovered/Resolved]
